FAERS Safety Report 14528818 (Version 1)
Quarter: 2018Q1

REPORT INFORMATION
  Report Type: Spontaneous
  Country: BR (occurrence: BR)
  Receive Date: 20180214
  Receipt Date: 20180214
  Transmission Date: 20180509
  Serious: Yes (Other)
  Sender: FDA-Public Use
  Company Number: BR-ABBVIE-18P-020-2255625-00

PATIENT
  Age: 28 Year
  Sex: Female
  Weight: 64 kg

DRUGS (9)
  1. DONAREN [Concomitant]
     Active Substance: TRAZODONE HYDROCHLORIDE
     Indication: ANXIETY
     Dosage: AT NIGHT
     Route: 048
     Dates: end: 20171210
  2. PRISTIQ EXTENDED-RELEASE [Concomitant]
     Active Substance: DESVENLAFAXINE SUCCINATE
     Dosage: DAILY DOSE: 100 MG, ONCE A DAY, IN THE MORNING
     Route: 048
  3. TEGRETOL [Concomitant]
     Active Substance: CARBAMAZEPINE
     Indication: EPILEPSY
     Dosage: DAILY DOSE: 3 TABLET, ONE IN THE MORNING / ONE IN THE AFTERNOON/ ONE AT NIGHT
     Route: 048
     Dates: start: 2016
  4. DEPAKOTE [Suspect]
     Active Substance: DIVALPROEX SODIUM
     Indication: EPILEPSY
     Dosage: IN THE MORNING
     Route: 048
     Dates: start: 2016
  5. FRISIUM [Concomitant]
     Active Substance: CLOBAZAM
     Dosage: UNSPECIFIED FORM STRENGTH
     Dates: start: 2016
  6. FRISIUM [Concomitant]
     Active Substance: CLOBAZAM
     Indication: EPILEPSY
     Dosage: DAILY DOSE: 1 TABLET TWICE A DAY; MORNING/ NIGHT
     Route: 048
  7. PRISTIQ EXTENDED-RELEASE [Concomitant]
     Active Substance: DESVENLAFAXINE SUCCINATE
     Indication: DEPRESSION
     Dosage: DAILY DOSE: 50 MG, ONCE A DAY, MORNING
     Route: 048
     Dates: start: 2017
  8. DEPAKOTE ER [Suspect]
     Active Substance: DIVALPROEX SODIUM
     Indication: EPILEPSY
     Dosage: DAILY DOSE: 1 TABLET AT NIGHT
     Route: 048
     Dates: start: 2016
  9. DONAREN [Concomitant]
     Active Substance: TRAZODONE HYDROCHLORIDE
     Indication: SLEEP DISORDER THERAPY

REACTIONS (2)
  - Seizure [Recovered/Resolved]
  - Drug dose omission [Unknown]

NARRATIVE: CASE EVENT DATE: 20171210
